FAERS Safety Report 6553926-7 (Version None)
Quarter: 2010Q1

REPORT INFORMATION
  Report Type: 
  Country: None (occurrence: None)
  Receive Date: 20100127
  Receipt Date: 20100113
  Transmission Date: 20100710
  Serious: Yes (Other)
  Sender: FDA-Public Use
  Company Number: FI-PFIZER INC-2010007243

PATIENT
  Age: 60 Year
  Sex: Male

DRUGS (1)
  1. ATARAX [Suspect]
     Indication: PRURITUS
     Dosage: 12.5 MG, 1X/DAY
     Route: 048
     Dates: start: 20070101, end: 20091001

REACTIONS (1)
  - GAMMA-GLUTAMYLTRANSFERASE INCREASED [None]
